FAERS Safety Report 15474721 (Version 2)
Quarter: 2019Q2

REPORT INFORMATION
  Report Type: Spontaneous
  Country: FR (occurrence: FR)
  Receive Date: 20181008
  Receipt Date: 20190411
  Transmission Date: 20190711
  Serious: Yes (Hospitalization)
  Sender: FDA-Public Use
  Company Number: FR-MYLANLABS-2018M1074025

PATIENT
  Age: 89 Year
  Sex: Female

DRUGS (6)
  1. DIFFU K [Suspect]
     Active Substance: POTASSIUM CHLORIDE
     Indication: PROPHYLAXIS
     Dosage: 2 DF, QD
     Route: 048
     Dates: start: 201806
  2. BISOPROLOL [Suspect]
     Active Substance: BISOPROLOL
     Indication: HYPERTENSION
     Dosage: 10 MG, QD
     Route: 048
  3. CORTANCYL [Suspect]
     Active Substance: PREDNISONE
     Indication: POLYMYALGIA RHEUMATICA
     Dosage: 10 MG, QD
     Route: 048
  4. PANTOPRAZOLE [Suspect]
     Active Substance: PANTOPRAZOLE
     Indication: PROPHYLAXIS AGAINST GASTROINTESTINAL ULCER
     Dosage: 40 MG, QD
     Route: 048
  5. FUROSEMIDE. [Suspect]
     Active Substance: FUROSEMIDE
     Indication: CARDIAC FAILURE
     Dosage: 40 MG, QD
     Route: 048
     Dates: start: 201806
  6. BROMAZEPAM [Suspect]
     Active Substance: BROMAZEPAM
     Indication: ANXIETY
     Dosage: UNK
     Route: 048

REACTIONS (1)
  - Pruritus [Not Recovered/Not Resolved]

NARRATIVE: CASE EVENT DATE: 201806
